FAERS Safety Report 13121490 (Version 3)
Quarter: 2017Q1

REPORT INFORMATION
  Report Type: Spontaneous
  Country: JP (occurrence: JP)
  Receive Date: 20170117
  Receipt Date: 20170203
  Transmission Date: 20170428
  Serious: Yes (Hospitalization)
  Sender: FDA-Public Use
  Company Number: JP-BAYER-2016-230903

PATIENT
  Age: 57 Year
  Sex: Female
  Weight: 43 kg

DRUGS (3)
  1. LOXONIN [Concomitant]
     Active Substance: LOXOPROFEN SODIUM
     Indication: PAIN
     Dosage: DAILY DOSE 180 MG
     Route: 048
     Dates: start: 20161114
  2. BETAFERON [Suspect]
     Active Substance: INTERFERON BETA-1B
     Indication: MULTIPLE SCLEROSIS
     Dosage: 9.6 MIU, UNK
     Route: 058
     Dates: start: 20070501
  3. MAGMITT [Concomitant]
     Active Substance: MAGNESIUM OXIDE
     Indication: CONSTIPATION
     Dosage: DAILY DOSE 1 G
     Route: 048
     Dates: start: 20100118

REACTIONS (4)
  - Muscular weakness [Recovering/Resolving]
  - Cataract [Recovered/Resolved]
  - Intentional product use issue [None]
  - Multiple sclerosis relapse [Recovering/Resolving]

NARRATIVE: CASE EVENT DATE: 20161111
